FAERS Safety Report 24071995 (Version 1)
Quarter: 2024Q3

REPORT INFORMATION
  Report Type: Spontaneous
  Country: US (occurrence: None)
  Receive Date: 20240709
  Receipt Date: 20240709
  Transmission Date: 20241016
  Serious: Yes (Disabling)
  Sender: Public
  Company Number: None

PATIENT
  Age: 66 Year
  Sex: Female
  Weight: 55.35 kg

DRUGS (5)
  1. ALPRAZOLAM [Suspect]
     Active Substance: ALPRAZOLAM
     Indication: Insomnia
  2. ALPRAZOLAM [Concomitant]
     Active Substance: ALPRAZOLAM
  3. VALACYCLOVIR [Concomitant]
     Active Substance: VALACYCLOVIR HYDROCHLORIDE
  4. VITAMIN D [Concomitant]
     Active Substance: VITAMIN D NOS
  5. multivitamin [Concomitant]

REACTIONS (13)
  - Therapeutic product effect decreased [None]
  - Therapy change [None]
  - Drug tolerance [None]
  - Withdrawal syndrome [None]
  - Insomnia [None]
  - Anxiety [None]
  - Dry mouth [None]
  - Palpitations [None]
  - Tachycardia [None]
  - Paraesthesia [None]
  - Depression [None]
  - Tinnitus [None]
  - Nervous system disorder [None]

NARRATIVE: CASE EVENT DATE: 20230715
